FAERS Safety Report 22076668 (Version 1)
Quarter: 2023Q1

REPORT INFORMATION
  Report Type: Spontaneous
  Country: US (occurrence: US)
  Receive Date: 20230309
  Receipt Date: 20230309
  Transmission Date: 20230418
  Serious: Yes (Death, Other)
  Sender: FDA-Public Use
  Company Number: US-BRISTOL-MYERS SQUIBB COMPANY-2023-034361

PATIENT
  Age: 55 Year
  Sex: Male
  Weight: 61.23 kg

DRUGS (1)
  1. OPDIVO [Suspect]
     Active Substance: NIVOLUMAB
     Indication: Oesophageal carcinoma
     Dosage: FREQUENCY: Q14 DAYS X 12 WEEKS.
     Route: 042
     Dates: start: 20210429, end: 20221207

REACTIONS (1)
  - Death [Fatal]

NARRATIVE: CASE EVENT DATE: 20230221
